FAERS Safety Report 13585266 (Version 1)
Quarter: 2017Q2

REPORT INFORMATION
  Report Type: Report from Study
  Country: US (occurrence: US)
  Receive Date: 20170526
  Receipt Date: 20170526
  Transmission Date: 20170830
  Serious: No
  Sender: FDA-Public Use
  Company Number: US-MALLINCKRODT-T201604678

PATIENT
  Sex: Male
  Weight: 84 kg

DRUGS (2)
  1. TRAMADOL. [Suspect]
     Active Substance: TRAMADOL
     Indication: PRODUCT USED FOR UNKNOWN INDICATION
     Dosage: 1-2 TWO TIMES A DAY AS NEEDED
     Route: 048
     Dates: start: 2012, end: 20160906
  2. HYDROCODONE/ACETAMINOPHEN [Suspect]
     Active Substance: ACETAMINOPHEN\HYDROCODONE
     Indication: PAIN MANAGEMENT
     Dosage: 3.5 MG 2X/DAY
     Route: 048
     Dates: start: 2012, end: 20160906

REACTIONS (1)
  - Insomnia [Not Recovered/Not Resolved]
